FAERS Safety Report 10160079 (Version 2)
Quarter: 2014Q3

REPORT INFORMATION
  Report Type: Report from Study
  Country: IL (occurrence: IL)
  Receive Date: 20140508
  Receipt Date: 20140814
  Transmission Date: 20150326
  Serious: Yes (Hospitalization)
  Sender: FDA-Public Use
  Company Number: IL-PFIZER INC-2014122007

PATIENT
  Age: 68 Year
  Sex: Male
  Weight: 82 kg

DRUGS (11)
  1. BLINDED THERAPY [Suspect]
     Active Substance: UNSPECIFIED INGREDIENT
     Indication: PANCREATIC CARCINOMA
     Dosage: EVERY 14 DAYS
     Route: 042
     Dates: start: 20131120
  2. AVILAC [Concomitant]
     Dosage: UNK
     Dates: start: 20140323
  3. FLUOROURACIL. [Suspect]
     Active Substance: FLUOROURACIL
     Dosage: 2400 MG/M2, ON D 1, 15, 29, 43 IN CYCLE1 AND D 1, 15 EVERY 28 D IN CYCLE2, AND BEYOND
     Route: 041
     Dates: start: 20131120
  4. LEUCOVORIN [Suspect]
     Active Substance: LEUCOVORIN
     Indication: PANCREATIC CARCINOMA
     Dosage: 400 MG/M2, ON D 1, 15, 29, 43 IN CYCLE1 AND D 1, 15 EVERY 28 D IN CYCLE2, AND BEYOND
     Route: 042
     Dates: start: 20131120
  5. OXALIPLATIN. [Suspect]
     Active Substance: OXALIPLATIN
     Indication: PANCREATIC CARCINOMA
     Dosage: 60 MG/M2, ON D 1, 15, 29, 43 IN CYCLE1 AND D 1, 15 EVERY 28 D IN CYCLE2, AND BEYOND
     Route: 042
     Dates: start: 20131120
  6. OPTALGIN [Concomitant]
     Active Substance: METAMIZOLE
     Dosage: UNK
     Dates: start: 20131012
  7. TELEBRIX [Concomitant]
     Active Substance: MEGLUMINE IOXITHALAMATE
     Dosage: UNK
     Dates: start: 20140401
  8. FLUOROURACIL. [Suspect]
     Active Substance: FLUOROURACIL
     Indication: PANCREATIC CARCINOMA
     Dosage: 400 MG/M2, ON D 1, 15, 29, 43 IN CYCLE1 AND D 1, 15 EVERY 28 D IN CYCLE2, AND BEYOND
     Route: 040
     Dates: start: 20131120
  9. FENTANYL. [Concomitant]
     Active Substance: FENTANYL
     Dosage: UNK
     Dates: start: 20140326
  10. PERCOCET [Concomitant]
     Active Substance: ACETAMINOPHEN\OXYCODONE HYDROCHLORIDE
     Dosage: UNK
     Dates: start: 20140326
  11. IRINOTECAN HCL [Suspect]
     Active Substance: IRINOTECAN HYDROCHLORIDE
     Indication: PANCREATIC CARCINOMA
     Dosage: 145 MG/M2, ON D 1, 15, 29, 43 IN CYCLE1 AND D 1, 15 EVERY 28 D IN CYCLE2, AND BEYOND
     Route: 042
     Dates: start: 20131120

REACTIONS (1)
  - Gastrointestinal haemorrhage [Recovered/Resolved]

NARRATIVE: CASE EVENT DATE: 20140415
